FAERS Safety Report 9493152 (Version 1)
Quarter: 2013Q3

REPORT INFORMATION
  Report Type: Spontaneous
  Country: CN (occurrence: CN)
  Receive Date: 20130902
  Receipt Date: 20130902
  Transmission Date: 20140515
  Serious: Yes (Other)
  Sender: FDA-Public Use
  Company Number: CN-ROCHE-1268619

PATIENT
  Sex: Female
  Weight: 63 kg

DRUGS (2)
  1. PEG-INTERFERON ALFA 2A [Suspect]
     Indication: PRODUCT USED FOR UNKNOWN INDICATION
     Route: 058
  2. PEG-INTERFERON ALFA 2A [Suspect]
     Route: 058
     Dates: start: 20110823, end: 20111220

REACTIONS (1)
  - Leukopenia [Not Recovered/Not Resolved]
